FAERS Safety Report 7962933-9 (Version None)
Quarter: 2011Q4

REPORT INFORMATION
  Report Type: 
  Country: None (occurrence: None)
  Receive Date: 20111207
  Receipt Date: 20111129
  Transmission Date: 20120403
  Serious: Yes (Hospitalization, Other)
  Sender: FDA-Public Use
  Company Number: US-CELGENEUS-163-21880-11114002

PATIENT
  Age: 78 Year
  Sex: Female
  Weight: 62.9 kg

DRUGS (7)
  1. VELCADE [Suspect]
     Indication: MULTIPLE MYELOMA
     Dosage: 1.3 MILLIGRAM/SQ. METER
     Route: 040
     Dates: start: 20110712, end: 20111014
  2. DEXAMETHASONE [Suspect]
     Indication: MULTIPLE MYELOMA
     Dosage: 20 MILLIGRAM
     Route: 048
     Dates: start: 20110712, end: 20111015
  3. CIPROFLOXACIN [Concomitant]
     Indication: INFECTION
     Route: 065
     Dates: start: 20111011
  4. ZOSYN [Concomitant]
     Indication: ABSCESS
     Route: 065
     Dates: start: 20111001
  5. REVLIMID [Suspect]
     Indication: MULTIPLE MYELOMA
     Dosage: 25 MILLIGRAM
     Route: 048
     Dates: start: 20110712, end: 20111017
  6. ASPIRIN [Concomitant]
     Route: 065
     Dates: start: 20110712
  7. CEFAZOLIN [Concomitant]
     Indication: ABSCESS
     Dosage: 1 GRAM
     Route: 041
     Dates: start: 20111001

REACTIONS (5)
  - STATUS EPILEPTICUS [None]
  - FALL [None]
  - HYPOKALAEMIA [None]
  - HYPERTENSION [None]
  - SOFT TISSUE INFECTION [None]
